FAERS Safety Report 12981420 (Version 2)
Quarter: 2016Q4

REPORT INFORMATION
  Report Type: Spontaneous
  Country: BR (occurrence: BR)
  Receive Date: 20161129
  Receipt Date: 20161207
  Transmission Date: 20170207
  Serious: Yes (Other)
  Sender: FDA-Public Use
  Company Number: BR-AMGEN-BRASP2016165174

PATIENT
  Age: 77 Year
  Sex: Female
  Weight: 53.5 kg

DRUGS (7)
  1. PROLIA [Suspect]
     Active Substance: DENOSUMAB
     Indication: OSTEOARTHRITIS
  2. HYDROCHLOROTHIAZIDE. [Concomitant]
     Active Substance: HYDROCHLOROTHIAZIDE
     Indication: URINE CALCIUM DECREASED
  3. VITAMIN D [Concomitant]
     Active Substance: CHOLECALCIFEROL
  4. PROLIA [Suspect]
     Active Substance: DENOSUMAB
     Indication: OSTEOPOROSIS
     Dosage: UNK, Q6MO
     Route: 065
     Dates: start: 2014
  5. TIROX [Concomitant]
     Indication: THYROID OPERATION
     Dosage: UNK
     Dates: start: 2013
  6. PROLIA [Suspect]
     Active Substance: DENOSUMAB
     Indication: ARTHRITIS
  7. ARTROLIVE [Concomitant]
     Active Substance: CHONDROITIN SULFATE (BOVINE)\GLUCOSAMINE SULFATE
     Indication: CARTILAGE OPERATION
     Dosage: UNK
     Dates: start: 2012

REACTIONS (9)
  - Mass [Not Recovered/Not Resolved]
  - Eye injury [Not Recovered/Not Resolved]
  - Eye swelling [Not Recovered/Not Resolved]
  - Swelling face [Not Recovered/Not Resolved]
  - Wound haemorrhage [Unknown]
  - Eye contusion [Not Recovered/Not Resolved]
  - Pain [Not Recovered/Not Resolved]
  - Face injury [Unknown]
  - Fall [Unknown]

NARRATIVE: CASE EVENT DATE: 20161117
